FAERS Safety Report 7617078-4 (Version None)
Quarter: 2011Q3

REPORT INFORMATION
  Report Type: 
  Country: None (occurrence: None)
  Receive Date: 20110718
  Receipt Date: 20110705
  Transmission Date: 20111222
  Serious: Yes (Hospitalization, Other)
  Sender: FDA-Public Use
  Company Number: US-ELI_LILLY_AND_COMPANY-US201105000690

PATIENT
  Sex: Female

DRUGS (21)
  1. LEVETIRACETAM [Concomitant]
     Dosage: UNK, UNKNOWN
     Route: 065
  2. MUPIROCIN [Concomitant]
     Dosage: UNK, UNKNOWN
     Route: 065
  3. FORTEO [Suspect]
     Dosage: 20 UG, QD
     Route: 065
  4. NOVOLIN R [Concomitant]
     Dosage: UNK, UNKNOWN
     Route: 065
  5. FOLIC ACID [Concomitant]
     Dosage: UNK, UNKNOWN
     Route: 065
  6. FORTEO [Suspect]
     Indication: OSTEOPOROSIS
     Dosage: 20 UG, QD
     Route: 065
     Dates: start: 20110201
  7. LISINOPRIL [Concomitant]
     Dosage: UNK, UNKNOWN
     Route: 065
  8. OMEPRAZOLE [Concomitant]
     Dosage: UNK, UNKNOWN
     Route: 065
  9. LOVENOX [Concomitant]
     Dosage: UNK, UNKNOWN
     Route: 065
  10. MULTI-VITAMIN [Concomitant]
     Dosage: UNK, UNKNOWN
     Route: 065
  11. FORTEO [Suspect]
     Dosage: 20 UG, QD
     Route: 065
  12. ASPIRIN [Concomitant]
     Dosage: UNK, UNKNOWN
     Route: 065
  13. PAXIL [Concomitant]
     Dosage: UNK, UNKNOWN
     Route: 065
  14. JANUVIA [Concomitant]
     Dosage: UNK, UNKNOWN
     Route: 065
  15. POTASSIUM CHLORIDE [Concomitant]
     Dosage: UNK, UNKNOWN
     Route: 065
  16. TRAZODONE [Concomitant]
     Dosage: UNK, UNKNOWN
     Route: 065
  17. GABAPENTIN [Concomitant]
     Dosage: UNK, UNKNOWN
     Route: 065
  18. VITAMIN D [Concomitant]
     Dosage: UNK, UNKNOWN
     Route: 065
  19. BACTRIM [Concomitant]
     Dosage: UNK, UNKNOWN
     Route: 065
  20. HYDROMORPHONE HCL [Concomitant]
     Dosage: UNK, UNKNOWN
     Route: 065
  21. SIMVASTATIN [Concomitant]
     Dosage: UNK, UNKNOWN
     Route: 065

REACTIONS (8)
  - HYDRONEPHROSIS [None]
  - ENTEROCOCCAL INFECTION [None]
  - NEPHROLITHIASIS [None]
  - KIDNEY INFECTION [None]
  - PROCEDURAL PAIN [None]
  - FLANK PAIN [None]
  - ESCHERICHIA INFECTION [None]
  - RENAL HAEMORRHAGE [None]
